FAERS Safety Report 17688557 (Version 2)
Quarter: 2020Q3

REPORT INFORMATION
  Report Type: Report from Study
  Country: FR (occurrence: FR)
  Receive Date: 20200421
  Receipt Date: 20200807
  Transmission Date: 20201102
  Serious: Yes (Death, Hospitalization, Other)
  Sender: FDA-Public Use
  Company Number: FR-ADVANZ PHARMA-202003002806

PATIENT

DRUGS (8)
  1. HYDROXYCHLOROQUINE [Suspect]
     Active Substance: HYDROXYCHLOROQUINE
     Indication: COVID-19
     Dosage: 400 MG, QD, FILM?COATED TABLET
     Route: 048
     Dates: start: 20200327, end: 20200328
  2. ETOMIDATE. [Concomitant]
     Active Substance: ETOMIDATE
     Dosage: UNK
     Dates: start: 20200326
  3. PROPOFOL. [Concomitant]
     Active Substance: PROPOFOL
     Dosage: UNK
     Dates: start: 20200327
  4. SUXAMETHONIUM [Concomitant]
     Active Substance: SUCCINYLCHOLINE
     Dosage: UNK
     Dates: start: 20200327
  5. MIDAZOLAM. [Concomitant]
     Active Substance: MIDAZOLAM
     Dosage: UNK
     Dates: start: 20200324
  6. ROCEPHINE [Concomitant]
     Active Substance: CEFTRIAXONE SODIUM
     Dosage: UNK
     Dates: start: 20200325
  7. SULFENTANYL [Concomitant]
     Active Substance: SUFENTANIL
     Dosage: UNK
     Dates: start: 20200327
  8. CARTEOL [Concomitant]
     Dosage: UNK
     Dates: start: 20200327, end: 20200327

REACTIONS (5)
  - Acute kidney injury [Unknown]
  - Septic shock [Fatal]
  - Off label use [Unknown]
  - Acute respiratory failure [Fatal]
  - Organ failure [Fatal]

NARRATIVE: CASE EVENT DATE: 20200327
